FAERS Safety Report 19678643 (Version 1)
Quarter: 2021Q3

REPORT INFORMATION
  Report Type: Spontaneous
  Country: US (occurrence: US)
  Receive Date: 20210809
  Receipt Date: 20210809
  Transmission Date: 20211014
  Serious: Yes (Hospitalization)
  Sender: FDA-Public Use
  Company Number: None

PATIENT
  Age: 51 Year
  Sex: Female
  Weight: 57 kg

DRUGS (6)
  1. PIPERACILLIN?TAZOBACTAM (ZOSYN) 3.375 GRAM/50 ML DEXTROSE IVPB [Concomitant]
     Dates: start: 20210602, end: 20210602
  2. ANAKINRA (KINERET) SUBCUTANEOUS INJECTION [Concomitant]
     Dates: start: 20210603, end: 20210606
  3. DECADRON [Concomitant]
     Active Substance: DEXAMETHASONE
     Dates: start: 20210602, end: 20210609
  4. YESCARTA [Suspect]
     Active Substance: AXICABTAGENE CILOLEUCEL
     Indication: FOLLICULAR LYMPHOMA
     Dosage: ?          OTHER FREQUENCY:ONCE;?
     Route: 041
     Dates: start: 20210527, end: 20210527
  5. ACYCLOVIR (ZOVIRAX) [Concomitant]
     Dates: start: 20210527, end: 20210808
  6. KEPPRA [Concomitant]
     Active Substance: LEVETIRACETAM
     Dates: start: 20210527, end: 20210701

REACTIONS (2)
  - Cytokine release syndrome [None]
  - Immune effector cell-associated neurotoxicity syndrome [None]

NARRATIVE: CASE EVENT DATE: 20210527
